FAERS Safety Report 7592643-1 (Version None)
Quarter: 2011Q3

REPORT INFORMATION
  Report Type: 
  Country: None (occurrence: None)
  Receive Date: 20110706
  Receipt Date: 20110629
  Transmission Date: 20111222
  Serious: Yes (Other)
  Sender: FDA-Public Use
  Company Number: US-PFIZER INC-2011145989

PATIENT
  Sex: Male
  Weight: 90.703 kg

DRUGS (6)
  1. RAPAMUNE [Suspect]
     Indication: RENAL TRANSPLANT
     Dosage: 1 MG, DAILY
     Route: 048
     Dates: start: 20100901
  2. METOPROLOL TARTRATE [Suspect]
     Indication: BLOOD PRESSURE ABNORMAL
     Dosage: 100 MG, UNK
  3. ATACAND [Suspect]
     Indication: BLOOD PRESSURE ABNORMAL
     Dosage: 60 MG, 2X/DAY
     Route: 048
  4. ATIVAN [Suspect]
     Dosage: 0.5 MG, AS NEEDED
     Route: 048
  5. CELLCEPT [Suspect]
     Dosage: UNK
  6. TOPROL-XL [Suspect]
     Dosage: 50 MG, DAILY
     Route: 048

REACTIONS (9)
  - DECREASED APPETITE [None]
  - ASTHENIA [None]
  - NAUSEA [None]
  - MALAISE [None]
  - WEIGHT DECREASED [None]
  - FATIGUE [None]
  - HYPOTENSION [None]
  - DIARRHOEA [None]
  - ABDOMINAL DISTENSION [None]
